FAERS Safety Report 4394572-3 (Version None)
Quarter: 2004Q3

REPORT INFORMATION
  Report Type: 
  Country: None (occurrence: None)
  Receive Date: 20040712
  Receipt Date: 20040321
  Transmission Date: 20050211
  Serious: Yes (Death)
  Sender: FDA-Public Use
  Company Number: DE-ROCHE-362272

PATIENT
  Age: 24 Year
  Sex: Male
  Weight: 65 kg

DRUGS (5)
  1. TAMIFLU [Suspect]
     Indication: INFLUENZA
     Dosage: DOSAGE REGIMEN REPORTED AS 150 MG.
     Route: 048
     Dates: start: 20040315, end: 20040320
  2. MERONEM [Concomitant]
     Dosage: DOSAGE REGIMEN REPORTED AS 1 GRAM.
  3. NOREPINEPHRINE BITARTRATE [Concomitant]
  4. SUFENTA [Concomitant]
  5. DORMICUM [Concomitant]
     Dosage: DOSAGE REGIMEN REPORTED AS 90 MG PER 3ML/HR.

REACTIONS (28)
  - ANURIA [None]
  - ASCITES [None]
  - BLOOD CULTURE POSITIVE [None]
  - BRAIN OEDEMA [None]
  - CEREBRAL HAEMORRHAGE [None]
  - COMA [None]
  - COOMBS POSITIVE HAEMOLYTIC ANAEMIA [None]
  - DISTURBANCE IN ATTENTION [None]
  - EPISTAXIS [None]
  - GENERAL PHYSICAL HEALTH DETERIORATION [None]
  - HAEMATURIA [None]
  - HAEMODIALYSIS [None]
  - HAEMORRHAGIC DIATHESIS [None]
  - HEPATIC FAILURE [None]
  - HYPOTENSION [None]
  - IATROGENIC INJURY [None]
  - LUNG INFILTRATION [None]
  - OXYGEN SATURATION DECREASED [None]
  - PCO2 DECREASED [None]
  - PHARYNGEAL HAEMORRHAGE [None]
  - PNEUMOTHORAX [None]
  - POSTOPERATIVE INFECTION [None]
  - PUPILLARY REFLEX IMPAIRED [None]
  - PUPILS UNEQUAL [None]
  - RENAL FAILURE [None]
  - STAPHYLOCOCCAL INFECTION [None]
  - SUBCUTANEOUS EMPHYSEMA [None]
  - THROMBOSIS [None]
